FAERS Safety Report 9779918 (Version 3)
Quarter: 2014Q1

REPORT INFORMATION
  Report Type: Spontaneous
  Country: US (occurrence: US)
  Receive Date: 20131223
  Receipt Date: 20140121
  Transmission Date: 20141002
  Serious: Yes (Other)
  Sender: FDA-Public Use
  Company Number: US-PFIZER INC-2013366481

PATIENT
  Age: 65 Year
  Sex: Female
  Weight: 78.69 kg

DRUGS (21)
  1. LYRICA [Suspect]
     Indication: NERVE INJURY
     Dosage: 150 MG, 3X/DAY
     Route: 048
     Dates: start: 2004
  2. LYRICA [Suspect]
     Indication: FIBROMYALGIA
  3. ARMOUR THYROID [Concomitant]
     Dosage: 90 MG, 1X/DAY
  4. FLONASE [Concomitant]
     Dosage: 50 MG (2 SPRAY IN EACH NOSTRIL), DAILY
     Route: 045
  5. XARELTO [Concomitant]
     Indication: ANTICOAGULANT THERAPY
     Dosage: 20 MG, DAILY (IN THE EVENING)
  6. FUROSEMIDE [Concomitant]
     Indication: DIURETIC THERAPY
     Dosage: 20 MG ONCE TO THREE TIMES DAILY, AS NEEDED
  7. OMEPRAZOLE [Concomitant]
     Indication: GASTRIC DISORDER
     Dosage: 20 MG, 1X/DAY
  8. MIRALAX [Concomitant]
     Indication: FAECES HARD
     Dosage: 1/2 TO 1 CAPFUL, 1X/DAY
  9. FENTANYL [Concomitant]
     Dosage: 50 UG, EVERY 3 DAYS
     Route: 062
  10. RANITIDINE [Concomitant]
     Dosage: 300 MG, 1X/DAY AT NIGHT
  11. OXYCODONE [Concomitant]
     Indication: PAIN
     Dosage: 10/325, AS NEEDED
  12. VOLTAREN [Concomitant]
     Dosage: NET WT 100 MG, AS NEEDED
  13. VITAMIN B12 [Concomitant]
     Dosage: 500 MG, 1X/DAY
  14. CITRACAL + D3 [Concomitant]
     Dosage: 500 MG, 1X/DAY
  15. VITAMIN B COMPLEX WITH C [Concomitant]
     Dosage: UNK, 1X/DAY
  16. CENTRUM SILVER 50+ [Concomitant]
     Dosage: UNK, 1X/DAY
  17. OMEGA XL [Concomitant]
     Dosage: 2 DF (PILLS), 2X/DAY
  18. SOTALOL [Concomitant]
     Indication: CARDIAC DISORDER
     Dosage: 120 MG, 2X/DAY
  19. TRAMADOL [Concomitant]
     Indication: PAIN
     Dosage: 50 MG EVERY 8 HOURS, AS NEEDED
  20. VITAMIN D3 [Concomitant]
     Dosage: 2000 TO 5000, 1X/DAY
  21. FOLIC ACID [Concomitant]
     Dosage: 400 MG, 1X/DAY

REACTIONS (7)
  - Off label use [Not Recovered/Not Resolved]
  - Anorectal disorder [Unknown]
  - Gait disturbance [Unknown]
  - Bronchitis [Recovering/Resolving]
  - Malaise [Recovering/Resolving]
  - Pain in extremity [Unknown]
  - Arthralgia [Unknown]
